FAERS Safety Report 20356819 (Version 5)
Quarter: 2022Q3

REPORT INFORMATION
  Report Type: Spontaneous
  Country: US (occurrence: US)
  Receive Date: 20220120
  Receipt Date: 20220722
  Transmission Date: 20221027
  Serious: Yes (Other)
  Sender: FDA-Public Use
  Company Number: US-PROCTER_AND_GAMBLE-GS21123900

PATIENT
  Sex: Female
  Weight: 68.934 kg

DRUGS (1)
  1. SECRET ANTIPERSPIRANT POWDER FRESH [Suspect]
     Active Substance: ALUMINUM CHLOROHYDRATE
     Dosage: ONCE DAILY, ONE SPRAY EACH UNDERARM
     Route: 061
     Dates: end: 2021

REACTIONS (3)
  - Invasive ductal breast carcinoma [Not Recovered/Not Resolved]
  - Hormone receptor positive HER2 negative breast cancer [Not Recovered/Not Resolved]
  - Product contamination chemical [Unknown]
